FAERS Safety Report 6737954-4 (Version None)
Quarter: 2010Q2

REPORT INFORMATION
  Report Type: 
  Country: None (occurrence: None)
  Receive Date: 20100524
  Receipt Date: 20100224
  Transmission Date: 20101027
  Serious: No
  Sender: FDA-Public Use
  Company Number: A0848717A

PATIENT

DRUGS (1)
  1. ARZERRA [Suspect]
     Route: 042

REACTIONS (1)
  - ACCIDENTAL EXPOSURE [None]
